FAERS Safety Report 23098148 (Version 1)
Quarter: 2023Q4

REPORT INFORMATION
  Report Type: Report from Study
  Country: ES (occurrence: ES)
  Receive Date: 20231023
  Receipt Date: 20231023
  Transmission Date: 20240110
  Serious: Yes (Hospitalization)
  Sender: FDA-Public Use
  Company Number: None

PATIENT
  Age: 70 Year
  Sex: Male

DRUGS (6)
  1. CLINDAMYCIN HYDROCHLORIDE [Suspect]
     Active Substance: CLINDAMYCIN HYDROCHLORIDE
     Indication: Infection
     Dosage: 1.2 G, 1X/DAY
     Route: 048
     Dates: start: 20230531, end: 20230611
  2. CIPROFLOXACIN [Suspect]
     Active Substance: CIPROFLOXACIN
     Indication: Infection
     Dosage: 1.5 G, 1X/DAY
     Route: 048
     Dates: start: 20230531, end: 20230611
  3. ENALAPRIL MALEATE AND HYDROCHLOROTHIAZIDE [Suspect]
     Active Substance: ENALAPRIL MALEATE\HYDROCHLOROTHIAZIDE
     Indication: Hypertension
     Dosage: 10 MG, 1X/DAY
     Route: 048
     Dates: start: 201106
  4. ACETAMINOPHEN [Suspect]
     Active Substance: ACETAMINOPHEN
     Indication: Pain
     Dosage: 3 G, 1X/DAY
     Route: 048
     Dates: start: 20230531, end: 20230603
  5. ASPIRIN [Concomitant]
     Active Substance: ASPIRIN
     Indication: Peripheral ischaemia
     Dosage: 100 MG, 1X/DAY
     Route: 048
     Dates: start: 202206
  6. CLOPIDOGREL [Concomitant]
     Active Substance: CLOPIDOGREL BISULFATE
     Indication: Peripheral ischaemia
     Dosage: 75 MG, 1X/DAY
     Route: 048
     Dates: start: 20230531

REACTIONS (1)
  - Renal failure [Recovered/Resolved]

NARRATIVE: CASE EVENT DATE: 20230611
